FAERS Safety Report 6574015-1 (Version None)
Quarter: 2010Q1

REPORT INFORMATION
  Report Type: 
  Country: None (occurrence: None)
  Receive Date: 20100208
  Receipt Date: 20100126
  Transmission Date: 20100710
  Serious: Yes (Hospitalization, Other)
  Sender: FDA-Public Use
  Company Number: CH-ELI_LILLY_AND_COMPANY-CH201002000100

PATIENT
  Age: 55 Year
  Sex: Female

DRUGS (7)
  1. CYMBALTA [Suspect]
     Indication: DEPRESSION
     Dosage: 60 MG, DAILY (1/D)
     Route: 048
     Dates: start: 20070101, end: 20091005
  2. AROMASIN [Concomitant]
     Indication: BREAST DISORDER
     Dosage: 25 MG, DAILY (1/D)
     Route: 048
     Dates: start: 20040101, end: 20091005
  3. CANDESARTAN CILEXETIL [Concomitant]
     Indication: ESSENTIAL HYPERTENSION
     Dosage: UNK, UNKNOWN
     Route: 048
     Dates: start: 20070101, end: 20091005
  4. STILNOX [Concomitant]
     Indication: SLEEP DISORDER
     Dosage: 10 MG, DAILY (1/D)
     Route: 048
     Dates: end: 20091010
  5. SERESTA [Concomitant]
     Dosage: 15 MG, 3/D
     Route: 048
  6. LORAZEPAM [Concomitant]
     Dosage: UNK, UNKNOWN
     Route: 065
     Dates: start: 20090910
  7. VITAMIN B COMPLEX CAP [Concomitant]
     Dosage: UNK, UNKNOWN
     Route: 065
     Dates: start: 20090910

REACTIONS (13)
  - ASTHENIA [None]
  - BALANCE DISORDER [None]
  - BILIARY TRACT DISORDER [None]
  - CHOLESTATIC LIVER INJURY [None]
  - GENERAL PHYSICAL HEALTH DETERIORATION [None]
  - HEPATIC STEATOSIS [None]
  - JAUNDICE [None]
  - OEDEMA PERIPHERAL [None]
  - PSYCHOMOTOR RETARDATION [None]
  - STRESS URINARY INCONTINENCE [None]
  - URINARY TRACT INFECTION [None]
  - URINE ANALYSIS ABNORMAL [None]
  - WEIGHT INCREASED [None]
